FAERS Safety Report 20160716 (Version 2)
Quarter: 2022Q1

REPORT INFORMATION
  Report Type: Spontaneous
  Country: IL (occurrence: IL)
  Receive Date: 20211208
  Receipt Date: 20220104
  Transmission Date: 20220424
  Serious: Yes (Hospitalization, Other)
  Sender: FDA-Public Use
  Company Number: IL-SA-SAC20211201001105

PATIENT
  Sex: Male

DRUGS (1)
  1. CABLIVI [Suspect]
     Active Substance: CAPLACIZUMAB-YHDP
     Indication: Thrombotic thrombocytopenic purpura

REACTIONS (5)
  - Subdural haematoma [Recovered/Resolved]
  - ADAMTS13 activity abnormal [Unknown]
  - Cerebral haemorrhage [Recovered/Resolved]
  - Fall [Unknown]
  - Injury [Unknown]
